FAERS Safety Report 15757230 (Version 2)
Quarter: 2019Q1

REPORT INFORMATION
  Report Type: Report from Study
  Country: AT (occurrence: AT)
  Receive Date: 20181224
  Receipt Date: 20190103
  Transmission Date: 20190417
  Serious: Yes (Death)
  Sender: FDA-Public Use
  Company Number: AT-PFIZER INC-2018523555

PATIENT

DRUGS (1)
  1. PROSTAVASIN [Suspect]
     Active Substance: ALPROSTADIL ALFADEX
     Indication: PERIPHERAL VASCULAR DISORDER
     Dosage: 40 UG, UNK

REACTIONS (1)
  - Death [Fatal]
